FAERS Safety Report 12101081 (Version 1)
Quarter: 2016Q1

REPORT INFORMATION
  Report Type: Spontaneous
  Country: BA (occurrence: BA)
  Receive Date: 20160222
  Receipt Date: 20160222
  Transmission Date: 20160526
  Serious: Yes (Other)
  Sender: FDA-Public Use
  Company Number: ALCN2016BA000559

PATIENT
  Age: 56 Year
  Sex: Male

DRUGS (1)
  1. AZARGA [Suspect]
     Active Substance: BRINZOLAMIDE\TIMOLOL MALEATE
     Indication: OPEN ANGLE GLAUCOMA
     Dosage: 1 DF, BID
     Route: 047
     Dates: start: 20151229, end: 20151230

REACTIONS (5)
  - Eyelid oedema [Recovered/Resolved]
  - Tongue oedema [Recovered/Resolved]
  - Hypersensitivity [Recovered/Resolved]
  - Pharyngeal oedema [Recovered/Resolved]
  - Skin disorder [Recovered/Resolved]

NARRATIVE: CASE EVENT DATE: 20151229
